FAERS Safety Report 6968520-3 (Version None)
Quarter: 2010Q3

REPORT INFORMATION
  Report Type: 
  Country: None (occurrence: None)
  Receive Date: 20100903
  Receipt Date: 20100903
  Transmission Date: 20110219
  Serious: No
  Sender: FDA-Public Use
  Company Number: None

PATIENT
  Age: 83 Year
  Sex: Female
  Weight: 44.5886 kg

DRUGS (3)
  1. DILTIAZEM [Suspect]
     Indication: HYPERTENSION
     Dosage: 180 MGCD ONCE  A DAY MOUTH
     Route: 048
     Dates: start: 19970101, end: 20100305
  2. FUROSEMIDE [Suspect]
     Indication: CORONARY ARTERY DISEASE
     Dosage: 10(10)MG ONCE A DAY MOUTH
     Route: 048
     Dates: end: 20100101
  3. METROPOLOL [Concomitant]

REACTIONS (2)
  - SYNCOPE [None]
  - VOMITING [None]
